FAERS Safety Report 18747560 (Version 3)
Quarter: 2021Q1

REPORT INFORMATION
  Report Type: Report from Study
  Country: CA (occurrence: CA)
  Receive Date: 20210115
  Receipt Date: 20210201
  Transmission Date: 20210419
  Serious: Yes (Other)
  Sender: FDA-Public Use
  Company Number: CA-SHIRE-CA202026476

PATIENT
  Age: 50 Year
  Sex: Male

DRUGS (2)
  1. DIURETIC [HYDROCHLOROTHIAZIDE] [Concomitant]
     Active Substance: HYDROCHLOROTHIAZIDE
     Dosage: UNK
     Route: 065
  2. 643 (LANADELUMAB) [Suspect]
     Active Substance: LANADELUMAB
     Indication: HEREDITARY ANGIOEDEMA
     Dosage: 300 MILLIGRAM, 1X/2WKS
     Route: 058
     Dates: start: 20200729, end: 20210120

REACTIONS (5)
  - Product distribution issue [Not Recovered/Not Resolved]
  - Drug ineffective [Unknown]
  - Abdominal infection [Not Recovered/Not Resolved]
  - Scleroderma [Unknown]
  - Pulmonary hypertension [Unknown]
